FAERS Safety Report 8783023 (Version 1)
Quarter: 2012Q4

REPORT INFORMATION
  Report Type: Report from Study
  Country: US (occurrence: US)
  Receive Date: 20120913
  Receipt Date: 20120913
  Transmission Date: 20130627
  Serious: No
  Sender: FDA-Public Use
  Company Number: US-VERTEX PHARMACEUTICAL INC.-AE-2012-009653

PATIENT
  Age: 53 Year
  Sex: Male
  Weight: 90.46 kg

DRUGS (6)
  1. INCIVEK [Suspect]
     Indication: HEPATITIS C
     Route: 048
     Dates: start: 20120608
  2. PEGASYS [Concomitant]
     Indication: HEPATITIS C
  3. RIBAPAK [Concomitant]
     Indication: HEPATITIS C
  4. FUROSEMIDE [Concomitant]
  5. SPIRONOLACT [Concomitant]
  6. VITAMIN D [Concomitant]

REACTIONS (2)
  - Fatigue [Unknown]
  - Pruritus generalised [Unknown]
